FAERS Safety Report 12629179 (Version 1)
Quarter: 2016Q3

REPORT INFORMATION
  Report Type: Spontaneous
  Country: US (occurrence: None)
  Receive Date: 20160805
  Receipt Date: 20160805
  Transmission Date: 20161109
  Serious: Yes (Hospitalization)
  Sender: FDA-Public Use
  Company Number: None

PATIENT
  Age: 50 Year
  Sex: Female

DRUGS (1)
  1. PEMBROLIZUMAB. [Suspect]
     Active Substance: PEMBROLIZUMAB
     Indication: OVARIAN CANCER RECURRENT
     Route: 042
     Dates: start: 20160624

REACTIONS (3)
  - Vomiting [None]
  - Pain [None]
  - Nausea [None]

NARRATIVE: CASE EVENT DATE: 20160804
